FAERS Safety Report 20146093 (Version 1)
Quarter: 2021Q4

REPORT INFORMATION
  Report Type: Spontaneous
  Country: CA (occurrence: CA)
  Receive Date: 20211203
  Receipt Date: 20211203
  Transmission Date: 20220303
  Serious: Yes (Death)
  Sender: FDA-Public Use
  Company Number: CA-TEVA-2021-CA-1982964

PATIENT
  Age: 75 Year
  Sex: Female
  Weight: 46 kg

DRUGS (9)
  1. OXALIPLATIN [Suspect]
     Active Substance: OXALIPLATIN
     Route: 042
  2. AMOXICILLIN\CLAVULANATE POTASSIUM [Concomitant]
     Active Substance: AMOXICILLIN\CLAVULANATE POTASSIUM
     Route: 065
  3. CALCIUM CARBONATE\CHOLECALCIFEROL [Concomitant]
     Active Substance: CALCIUM CARBONATE\CHOLECALCIFEROL
  4. IMODIUM [Concomitant]
     Active Substance: LOPERAMIDE HYDROCHLORIDE
  5. PANTOPRAZOLE [Concomitant]
     Active Substance: PANTOPRAZOLE
  6. POLYETHYLENE GLYCOL 3350 [Concomitant]
     Active Substance: POLYETHYLENE GLYCOL 3350
  7. SENNOSIDES [Concomitant]
     Active Substance: SENNOSIDES
  8. TYLENOL [Concomitant]
     Active Substance: ACETAMINOPHEN
  9. ZINC [Concomitant]
     Active Substance: ZINC

REACTIONS (8)
  - Acute hepatic failure [Fatal]
  - Generalised oedema [Fatal]
  - Hepatic steatosis [Fatal]
  - Jaundice [Fatal]
  - Lumbar vertebral fracture [Fatal]
  - Nodule [Fatal]
  - Oedema [Fatal]
  - Spleen atrophy [Fatal]
